FAERS Safety Report 17186199 (Version 1)
Quarter: 2019Q4

REPORT INFORMATION
  Report Type: Spontaneous
  Country: US (occurrence: US)
  Receive Date: 20191220
  Receipt Date: 20191220
  Transmission Date: 20200122
  Serious: Yes (Hospitalization)
  Sender: FDA-Public Use
  Company Number: US-ALLERGAN-1951501US

PATIENT
  Sex: Female

DRUGS (9)
  1. HYDROCHLOROTHIAZIDE UNK [Suspect]
     Active Substance: HYDROCHLOROTHIAZIDE
     Indication: HYPERTENSION
     Dosage: UNK
     Dates: end: 2019
  2. GOCOVRI [Suspect]
     Active Substance: AMANTADINE
     Indication: DYSKINESIA
     Dosage: 137 MG, QHS
     Route: 048
     Dates: start: 20190627
  3. TRAMADOL. [Concomitant]
     Active Substance: TRAMADOL
     Dosage: UNK
     Dates: end: 2019
  4. DEEP BRAIN STIMULATION [Concomitant]
  5. SINEMET [Concomitant]
     Active Substance: CARBIDOPA\LEVODOPA
     Dosage: 25-100 MG
  6. BACLOFEN. [Concomitant]
     Active Substance: BACLOFEN
     Dosage: UNK
     Dates: end: 2019
  7. GABAPENTIN. [Concomitant]
     Active Substance: GABAPENTIN
     Dosage: UNK
     Dates: end: 2019
  8. UNSPECIFIED STATIN [Concomitant]
     Dosage: UNK
     Dates: end: 2019
  9. FLEXERIL [Concomitant]
     Active Substance: CYCLOBENZAPRINE HYDROCHLORIDE
     Dosage: UNK
     Dates: end: 2019

REACTIONS (13)
  - Parkinson^s disease [Recovering/Resolving]
  - Pneumonia aspiration [Unknown]
  - Urinary tract infection [Unknown]
  - Hallucination, visual [Recovered/Resolved]
  - Metabolic encephalopathy [Recovering/Resolving]
  - Dermatitis [Unknown]
  - Hypomagnesaemia [Recovered/Resolved]
  - Hypokalaemia [Recovered/Resolved]
  - Pyrexia [Recovered/Resolved]
  - Diarrhoea [Unknown]
  - Dysphagia [Unknown]
  - Fall [Unknown]
  - Hypertension [Recovering/Resolving]
